FAERS Safety Report 7359539-1 (Version None)
Quarter: 2011Q1

REPORT INFORMATION
  Report Type: 
  Country: None (occurrence: None)
  Receive Date: 20110317
  Receipt Date: 20091216
  Transmission Date: 20110831
  Serious: No
  Sender: FDA-Public Use
  Company Number: US-PFIZER INC-2009311240

PATIENT
  Sex: Male

DRUGS (3)
  1. PLAVIX [Suspect]
  2. ZOCOR [Suspect]
     Dosage: UNK
  3. NORVASC [Suspect]
     Dosage: UNK

REACTIONS (1)
  - CONFUSIONAL STATE [None]
